FAERS Safety Report 8720377 (Version 5)
Quarter: 2013Q3

REPORT INFORMATION
  Report Type: Report from Study
  Country: US (occurrence: US)
  Receive Date: 20120813
  Receipt Date: 20130822
  Transmission Date: 20140515
  Serious: Yes (Hospitalization, Other)
  Sender: FDA-Public Use
  Company Number: US-ACTELION-A-US2012-69714

PATIENT
  Age: 78 Year
  Sex: Female

DRUGS (4)
  1. TRACLEER [Suspect]
     Indication: PULMONARY ARTERIAL HYPERTENSION
     Dosage: 125 MG, BID
     Route: 048
     Dates: start: 2010
  2. COUMADIN [Concomitant]
  3. PRADAXA [Concomitant]
  4. PLAVIX [Concomitant]

REACTIONS (10)
  - Arthritis [Recovering/Resolving]
  - Vascular occlusion [Recovering/Resolving]
  - Medical device implantation [Recovering/Resolving]
  - Thrombosis [Recovering/Resolving]
  - Nausea [Recovering/Resolving]
  - Sleep disorder [Recovering/Resolving]
  - Pneumonia [Recovering/Resolving]
  - Dyspnoea [Recovering/Resolving]
  - Dizziness [Recovering/Resolving]
  - Dyskinesia [Not Recovered/Not Resolved]
